FAERS Safety Report 16873810 (Version 24)
Quarter: 2025Q2

REPORT INFORMATION
  Report Type: Spontaneous
  Country: GB (occurrence: GB)
  Receive Date: 20191001
  Receipt Date: 20250604
  Transmission Date: 20250717
  Serious: Yes (Death, Other)
  Sender: MYLAN
  Company Number: GB-PFIZER INC-2019211267

PATIENT
  Age: 39 Year
  Sex: Male
  Weight: 91 kg

DRUGS (180)
  1. BUPRENORPHINE [Interacting]
     Active Substance: BUPRENORPHINE
     Indication: Drug rehabilitation
  2. BUPRENORPHINE [Interacting]
     Active Substance: BUPRENORPHINE
     Indication: Drug dependence
  3. BUPRENORPHINE [Interacting]
     Active Substance: BUPRENORPHINE
     Route: 065
  4. BUPRENORPHINE [Interacting]
     Active Substance: BUPRENORPHINE
     Route: 065
  5. BUPRENORPHINE [Interacting]
     Active Substance: BUPRENORPHINE
  6. BUPRENORPHINE [Interacting]
     Active Substance: BUPRENORPHINE
  7. BUPRENORPHINE [Interacting]
     Active Substance: BUPRENORPHINE
     Route: 065
  8. BUPRENORPHINE [Interacting]
     Active Substance: BUPRENORPHINE
     Route: 065
  9. BUPRENORPHINE [Interacting]
     Active Substance: BUPRENORPHINE
  10. BUPRENORPHINE [Interacting]
     Active Substance: BUPRENORPHINE
     Route: 065
  11. BUPRENORPHINE [Interacting]
     Active Substance: BUPRENORPHINE
  12. BUPRENORPHINE [Interacting]
     Active Substance: BUPRENORPHINE
     Route: 065
  13. PREGABALIN [Interacting]
     Active Substance: PREGABALIN
     Indication: Product used for unknown indication
     Dates: start: 20181027, end: 20181027
  14. PREGABALIN [Interacting]
     Active Substance: PREGABALIN
     Route: 065
     Dates: start: 20181027, end: 20181027
  15. PREGABALIN [Interacting]
     Active Substance: PREGABALIN
     Route: 065
     Dates: start: 20181027, end: 20181027
  16. PREGABALIN [Interacting]
     Active Substance: PREGABALIN
     Dates: start: 20181027, end: 20181027
  17. CODEINE [Interacting]
     Active Substance: CODEINE
     Indication: Product used for unknown indication
  18. CODEINE [Interacting]
     Active Substance: CODEINE
  19. CODEINE [Interacting]
     Active Substance: CODEINE
     Route: 065
  20. CODEINE [Interacting]
     Active Substance: CODEINE
     Route: 065
  21. CODEINE [Interacting]
     Active Substance: CODEINE
  22. CODEINE [Interacting]
     Active Substance: CODEINE
  23. CODEINE [Interacting]
     Active Substance: CODEINE
     Route: 065
  24. CODEINE [Interacting]
     Active Substance: CODEINE
     Route: 065
  25. ALCOHOL [Interacting]
     Active Substance: ALCOHOL
     Indication: Product used for unknown indication
  26. ALCOHOL [Interacting]
     Active Substance: ALCOHOL
  27. ALCOHOL [Interacting]
     Active Substance: ALCOHOL
     Route: 065
  28. ALCOHOL [Interacting]
     Active Substance: ALCOHOL
     Route: 065
  29. ALCOHOL [Interacting]
     Active Substance: ALCOHOL
  30. ALCOHOL [Interacting]
     Active Substance: ALCOHOL
  31. ALCOHOL [Interacting]
     Active Substance: ALCOHOL
     Route: 065
  32. ALCOHOL [Interacting]
     Active Substance: ALCOHOL
     Route: 065
  33. ALCOHOL [Interacting]
     Active Substance: ALCOHOL
  34. ALCOHOL [Interacting]
     Active Substance: ALCOHOL
     Route: 065
  35. ALCOHOL [Interacting]
     Active Substance: ALCOHOL
  36. ALCOHOL [Interacting]
     Active Substance: ALCOHOL
     Route: 065
  37. COCAINE [Suspect]
     Active Substance: COCAINE
     Indication: Product used for unknown indication
  38. COCAINE [Suspect]
     Active Substance: COCAINE
     Indication: Drug rehabilitation
     Route: 065
  39. COCAINE [Suspect]
     Active Substance: COCAINE
     Route: 065
  40. COCAINE [Suspect]
     Active Substance: COCAINE
  41. HEROIN [Suspect]
     Active Substance: DIAMORPHINE
     Indication: Drug rehabilitation
     Route: 065
  42. HEROIN [Suspect]
     Active Substance: DIAMORPHINE
     Indication: Drug dependence
  43. HEROIN [Suspect]
     Active Substance: DIAMORPHINE
  44. HEROIN [Suspect]
     Active Substance: DIAMORPHINE
     Route: 065
  45. HEROIN [Suspect]
     Active Substance: DIAMORPHINE
     Route: 065
  46. HEROIN [Suspect]
     Active Substance: DIAMORPHINE
     Route: 065
  47. HEROIN [Suspect]
     Active Substance: DIAMORPHINE
  48. HEROIN [Suspect]
     Active Substance: DIAMORPHINE
  49. HEROIN [Suspect]
     Active Substance: DIAMORPHINE
  50. HEROIN [Suspect]
     Active Substance: DIAMORPHINE
  51. HEROIN [Suspect]
     Active Substance: DIAMORPHINE
     Route: 065
  52. HEROIN [Suspect]
     Active Substance: DIAMORPHINE
     Route: 065
  53. HEROIN [Suspect]
     Active Substance: DIAMORPHINE
  54. HEROIN [Suspect]
     Active Substance: DIAMORPHINE
  55. HEROIN [Suspect]
     Active Substance: DIAMORPHINE
     Route: 065
  56. HEROIN [Suspect]
     Active Substance: DIAMORPHINE
     Route: 065
  57. MORPHINE [Interacting]
     Active Substance: MORPHINE
     Indication: Product used for unknown indication
  58. MORPHINE [Interacting]
     Active Substance: MORPHINE
  59. MORPHINE [Interacting]
     Active Substance: MORPHINE
     Route: 065
  60. MORPHINE [Interacting]
     Active Substance: MORPHINE
     Route: 065
  61. MORPHINE [Interacting]
     Active Substance: MORPHINE
  62. MORPHINE [Interacting]
     Active Substance: MORPHINE
  63. MORPHINE [Interacting]
     Active Substance: MORPHINE
     Route: 065
  64. MORPHINE [Interacting]
     Active Substance: MORPHINE
     Route: 065
  65. DIAZEPAM [Interacting]
     Active Substance: DIAZEPAM
     Indication: Product used for unknown indication
  66. DIAZEPAM [Interacting]
     Active Substance: DIAZEPAM
  67. DIAZEPAM [Interacting]
     Active Substance: DIAZEPAM
     Route: 065
  68. DIAZEPAM [Interacting]
     Active Substance: DIAZEPAM
     Route: 065
  69. DIAZEPAM [Interacting]
     Active Substance: DIAZEPAM
  70. DIAZEPAM [Interacting]
     Active Substance: DIAZEPAM
  71. DIAZEPAM [Interacting]
     Active Substance: DIAZEPAM
     Route: 065
  72. DIAZEPAM [Interacting]
     Active Substance: DIAZEPAM
     Route: 065
  73. MORPHINE SULFATE [Suspect]
     Active Substance: MORPHINE SULFATE
     Indication: Product used for unknown indication
  74. MORPHINE SULFATE [Suspect]
     Active Substance: MORPHINE SULFATE
     Route: 065
  75. MORPHINE SULFATE [Suspect]
     Active Substance: MORPHINE SULFATE
     Route: 065
  76. MORPHINE SULFATE [Suspect]
     Active Substance: MORPHINE SULFATE
  77. PAPAVERINE [Concomitant]
     Active Substance: PAPAVERINE
     Indication: Product used for unknown indication
  78. PAPAVERINE [Concomitant]
     Active Substance: PAPAVERINE
  79. PAPAVERINE [Concomitant]
     Active Substance: PAPAVERINE
     Route: 065
  80. PAPAVERINE [Concomitant]
     Active Substance: PAPAVERINE
     Route: 065
  81. PAPAVERINE [Concomitant]
     Active Substance: PAPAVERINE
  82. PAPAVERINE [Concomitant]
     Active Substance: PAPAVERINE
  83. PAPAVERINE [Concomitant]
     Active Substance: PAPAVERINE
     Route: 065
  84. PAPAVERINE [Concomitant]
     Active Substance: PAPAVERINE
     Route: 065
  85. TEGRETOL [Concomitant]
     Active Substance: CARBAMAZEPINE
     Indication: Product used for unknown indication
     Route: 065
  86. TEGRETOL [Concomitant]
     Active Substance: CARBAMAZEPINE
  87. TEGRETOL [Concomitant]
     Active Substance: CARBAMAZEPINE
  88. TEGRETOL [Concomitant]
     Active Substance: CARBAMAZEPINE
     Route: 065
  89. TEGRETOL [Concomitant]
     Active Substance: CARBAMAZEPINE
  90. TEGRETOL [Concomitant]
     Active Substance: CARBAMAZEPINE
  91. TEGRETOL [Concomitant]
     Active Substance: CARBAMAZEPINE
     Route: 065
  92. TEGRETOL [Concomitant]
     Active Substance: CARBAMAZEPINE
     Route: 065
  93. TEGRETOL [Concomitant]
     Active Substance: CARBAMAZEPINE
  94. TEGRETOL [Concomitant]
     Active Substance: CARBAMAZEPINE
     Route: 065
  95. TEGRETOL [Concomitant]
     Active Substance: CARBAMAZEPINE
  96. TEGRETOL [Concomitant]
     Active Substance: CARBAMAZEPINE
     Route: 065
  97. TEGRETOL [Concomitant]
     Active Substance: CARBAMAZEPINE
     Route: 065
  98. TEGRETOL [Concomitant]
     Active Substance: CARBAMAZEPINE
  99. TEGRETOL [Concomitant]
     Active Substance: CARBAMAZEPINE
  100. TEGRETOL [Concomitant]
     Active Substance: CARBAMAZEPINE
     Route: 065
  101. TEGRETOL [Concomitant]
     Active Substance: CARBAMAZEPINE
     Route: 065
  102. TEGRETOL [Concomitant]
     Active Substance: CARBAMAZEPINE
  103. TEGRETOL [Concomitant]
     Active Substance: CARBAMAZEPINE
  104. TEGRETOL [Concomitant]
     Active Substance: CARBAMAZEPINE
     Route: 065
  105. TEGRETOL [Concomitant]
     Active Substance: CARBAMAZEPINE
     Route: 065
  106. TEGRETOL [Concomitant]
     Active Substance: CARBAMAZEPINE
  107. TEGRETOL [Concomitant]
     Active Substance: CARBAMAZEPINE
  108. TEGRETOL [Concomitant]
     Active Substance: CARBAMAZEPINE
     Route: 065
  109. TEGRETOL [Concomitant]
     Active Substance: CARBAMAZEPINE
  110. TEGRETOL [Concomitant]
     Active Substance: CARBAMAZEPINE
  111. TEGRETOL [Concomitant]
     Active Substance: CARBAMAZEPINE
     Route: 065
  112. TEGRETOL [Concomitant]
     Active Substance: CARBAMAZEPINE
     Route: 065
  113. TEGRETOL [Concomitant]
     Active Substance: CARBAMAZEPINE
  114. TEGRETOL [Concomitant]
     Active Substance: CARBAMAZEPINE
  115. TEGRETOL [Concomitant]
     Active Substance: CARBAMAZEPINE
     Route: 065
  116. TEGRETOL [Concomitant]
     Active Substance: CARBAMAZEPINE
     Route: 065
  117. TRAZODONE [Concomitant]
     Active Substance: TRAZODONE HYDROCHLORIDE
     Indication: Product used for unknown indication
  118. TRAZODONE [Concomitant]
     Active Substance: TRAZODONE HYDROCHLORIDE
  119. TRAZODONE [Concomitant]
     Active Substance: TRAZODONE HYDROCHLORIDE
     Route: 065
  120. TRAZODONE [Concomitant]
     Active Substance: TRAZODONE HYDROCHLORIDE
     Route: 065
  121. TRAZODONE [Concomitant]
     Active Substance: TRAZODONE HYDROCHLORIDE
  122. TRAZODONE [Concomitant]
     Active Substance: TRAZODONE HYDROCHLORIDE
  123. TRAZODONE [Concomitant]
     Active Substance: TRAZODONE HYDROCHLORIDE
     Route: 065
  124. TRAZODONE [Concomitant]
     Active Substance: TRAZODONE HYDROCHLORIDE
     Route: 065
  125. PROPRANOLOL [Concomitant]
     Active Substance: PROPRANOLOL HYDROCHLORIDE
     Indication: Product used for unknown indication
  126. PROPRANOLOL [Concomitant]
     Active Substance: PROPRANOLOL HYDROCHLORIDE
  127. PROPRANOLOL [Concomitant]
     Active Substance: PROPRANOLOL HYDROCHLORIDE
     Route: 065
  128. PROPRANOLOL [Concomitant]
     Active Substance: PROPRANOLOL HYDROCHLORIDE
     Route: 065
  129. PROPRANOLOL [Concomitant]
     Active Substance: PROPRANOLOL HYDROCHLORIDE
  130. PROPRANOLOL [Concomitant]
     Active Substance: PROPRANOLOL HYDROCHLORIDE
  131. PROPRANOLOL [Concomitant]
     Active Substance: PROPRANOLOL HYDROCHLORIDE
     Route: 065
  132. PROPRANOLOL [Concomitant]
     Active Substance: PROPRANOLOL HYDROCHLORIDE
     Route: 065
  133. ALPRAZOLAM [Concomitant]
     Active Substance: ALPRAZOLAM
     Indication: Product used for unknown indication
  134. ALPRAZOLAM [Concomitant]
     Active Substance: ALPRAZOLAM
  135. ALPRAZOLAM [Concomitant]
     Active Substance: ALPRAZOLAM
     Route: 016
  136. ALPRAZOLAM [Concomitant]
     Active Substance: ALPRAZOLAM
     Route: 016
  137. ALPRAZOLAM [Concomitant]
     Active Substance: ALPRAZOLAM
  138. ALPRAZOLAM [Concomitant]
     Active Substance: ALPRAZOLAM
  139. ALPRAZOLAM [Concomitant]
     Active Substance: ALPRAZOLAM
     Route: 016
  140. ALPRAZOLAM [Concomitant]
     Active Substance: ALPRAZOLAM
     Route: 016
  141. ALPRAZOLAM [Concomitant]
     Active Substance: ALPRAZOLAM
  142. ALPRAZOLAM [Concomitant]
     Active Substance: ALPRAZOLAM
     Route: 065
  143. ALPRAZOLAM [Concomitant]
     Active Substance: ALPRAZOLAM
  144. ALPRAZOLAM [Concomitant]
     Active Substance: ALPRAZOLAM
     Route: 065
  145. ACETAMINOPHEN [Concomitant]
     Active Substance: ACETAMINOPHEN
     Indication: Product used for unknown indication
  146. ACETAMINOPHEN [Concomitant]
     Active Substance: ACETAMINOPHEN
  147. ACETAMINOPHEN [Concomitant]
     Active Substance: ACETAMINOPHEN
     Route: 065
  148. ACETAMINOPHEN [Concomitant]
     Active Substance: ACETAMINOPHEN
     Route: 065
  149. ACETAMINOPHEN [Concomitant]
     Active Substance: ACETAMINOPHEN
  150. ACETAMINOPHEN [Concomitant]
     Active Substance: ACETAMINOPHEN
  151. ACETAMINOPHEN [Concomitant]
     Active Substance: ACETAMINOPHEN
     Route: 065
  152. ACETAMINOPHEN [Concomitant]
     Active Substance: ACETAMINOPHEN
     Route: 065
  153. DABIGATRAN [Concomitant]
     Active Substance: DABIGATRAN
     Indication: Product used for unknown indication
  154. DABIGATRAN [Concomitant]
     Active Substance: DABIGATRAN
  155. DABIGATRAN [Concomitant]
     Active Substance: DABIGATRAN
     Route: 065
  156. DABIGATRAN [Concomitant]
     Active Substance: DABIGATRAN
     Route: 065
  157. DABIGATRAN [Concomitant]
     Active Substance: DABIGATRAN
  158. DABIGATRAN [Concomitant]
     Active Substance: DABIGATRAN
  159. DABIGATRAN [Concomitant]
     Active Substance: DABIGATRAN
     Route: 065
  160. DABIGATRAN [Concomitant]
     Active Substance: DABIGATRAN
     Route: 065
  161. CAFFEINE [Concomitant]
     Active Substance: CAFFEINE
     Indication: Product used for unknown indication
  162. CAFFEINE [Concomitant]
     Active Substance: CAFFEINE
  163. CAFFEINE [Concomitant]
     Active Substance: CAFFEINE
     Route: 065
  164. CAFFEINE [Concomitant]
     Active Substance: CAFFEINE
     Route: 065
  165. CAFFEINE [Concomitant]
     Active Substance: CAFFEINE
  166. CAFFEINE [Concomitant]
     Active Substance: CAFFEINE
  167. CAFFEINE [Concomitant]
     Active Substance: CAFFEINE
     Route: 065
  168. CAFFEINE [Concomitant]
     Active Substance: CAFFEINE
     Route: 065
  169. NICOTINE [Concomitant]
     Active Substance: NICOTINE
     Indication: Product used for unknown indication
  170. NICOTINE [Concomitant]
     Active Substance: NICOTINE
     Route: 065
  171. NICOTINE [Concomitant]
     Active Substance: NICOTINE
     Route: 065
  172. NICOTINE [Concomitant]
     Active Substance: NICOTINE
  173. NOSCAPINE [Concomitant]
     Active Substance: NOSCAPINE
     Indication: Product used for unknown indication
  174. NOSCAPINE [Concomitant]
     Active Substance: NOSCAPINE
  175. NOSCAPINE [Concomitant]
     Active Substance: NOSCAPINE
     Route: 065
  176. NOSCAPINE [Concomitant]
     Active Substance: NOSCAPINE
     Route: 065
  177. NOSCAPINE [Concomitant]
     Active Substance: NOSCAPINE
  178. NOSCAPINE [Concomitant]
     Active Substance: NOSCAPINE
  179. NOSCAPINE [Concomitant]
     Active Substance: NOSCAPINE
     Route: 065
  180. NOSCAPINE [Concomitant]
     Active Substance: NOSCAPINE
     Route: 065

REACTIONS (6)
  - Toxicity to various agents [Fatal]
  - Alcohol interaction [Fatal]
  - Drug interaction [Fatal]
  - Intentional product misuse [Fatal]
  - Off label use [Fatal]
  - Overdose [Fatal]

NARRATIVE: CASE EVENT DATE: 20181027
